FAERS Safety Report 9159586 (Version 1)
Quarter: 2013Q1

REPORT INFORMATION
  Report Type: Spontaneous
  Country: US (occurrence: None)
  Receive Date: 20130219
  Receipt Date: 20130219
  Transmission Date: 20140127
  Serious: Yes (Other)
  Sender: FDA-Public Use
  Company Number: 2013P1002104

PATIENT
  Age: 68 Year
  Sex: Female
  Weight: 30.84 kg

DRUGS (6)
  1. ACETAMINOPHEN\BUTALBITAL\CAFFEINE\CODEINE PHOSPHATE [Suspect]
     Indication: IRRITABLE BOWEL SYNDROME
     Dosage: 6 CAPSULES;QD;PO
     Dates: start: 2011, end: 201208
  2. ACETAMINOPHEN\BUTALBITAL\CAFFEINE\CODEINE PHOSPHATE [Suspect]
     Dates: start: 201208, end: 201208
  3. BENADRYL [Suspect]
     Dosage: 1/2 PILL
     Dates: start: 2012
  4. UNSPECIFIED ANTIBIOTIC [Suspect]
     Dates: start: 201301
  5. ZANTAC [Concomitant]
  6. VITAMIN D [Concomitant]

REACTIONS (8)
  - Weight decreased [None]
  - Decreased appetite [None]
  - Hypersensitivity [None]
  - Urticaria [None]
  - Dyspnoea [None]
  - Medication overuse headache [None]
  - Cystitis [None]
  - Product quality issue [None]
